FAERS Safety Report 8791390 (Version 1)
Quarter: 2012Q4

REPORT INFORMATION
  Report Type: Spontaneous
  Country: BR (occurrence: None)
  Receive Date: 20120912
  Receipt Date: 20120912
  Transmission Date: 20130627
  Serious: Yes (Other)
  Sender: FDA-Public Use
  Company Number: IMP_05984_2012

PATIENT
  Age: 64 Year
  Sex: Female

DRUGS (5)
  1. CHLOROQUINE PHOSPHATE [Suspect]
     Indication: RHEUMATOID ARTHRITIS
     Dosage: 200 mg (unknown frequency)
  2. PREDNISONE (UNKNOWN) [Concomitant]
  3. METHOTREXATE (UNKNOWN) [Concomitant]
  4. MELOXICAM (UNKNOWN) [Concomitant]
  5. ASPIRIN [Concomitant]

REACTIONS (5)
  - Pigmentation buccal [None]
  - Blindness [None]
  - Retinal pigmentation [None]
  - Vision blurred [None]
  - Oral disorder [None]
